FAERS Safety Report 13499536 (Version 1)
Quarter: 2017Q2

REPORT INFORMATION
  Report Type: Spontaneous
  Country: AT (occurrence: AT)
  Receive Date: 20170501
  Receipt Date: 20170501
  Transmission Date: 20170830
  Serious: Yes (Other)
  Sender: FDA-Public Use
  Company Number: AT-EMD SERONO-8155527

PATIENT
  Age: 17 Year
  Sex: Male
  Weight: 51 kg

DRUGS (1)
  1. SAIZEN [Suspect]
     Active Substance: SOMATROPIN
     Indication: PRODUCT USED FOR UNKNOWN INDICATION
     Dates: start: 200505, end: 200806

REACTIONS (1)
  - Myopia [Not Recovered/Not Resolved]
